FAERS Safety Report 7293306-2 (Version None)
Quarter: 2011Q1

REPORT INFORMATION
  Report Type: 
  Country: None (occurrence: None)
  Receive Date: 20110215
  Receipt Date: 20110204
  Transmission Date: 20110831
  Serious: Yes (Other)
  Sender: FDA-Public Use
  Company Number: US-ROCHE-450692

PATIENT
  Sex: Female
  Weight: 86.2 kg

DRUGS (1)
  1. ACCUTANE [Suspect]
     Route: 048
     Dates: start: 19891114, end: 19900114

REACTIONS (10)
  - CROHN'S DISEASE [None]
  - INFLAMMATORY BOWEL DISEASE [None]
  - ANXIETY [None]
  - DEPRESSION [None]
  - RECTAL HAEMORRHAGE [None]
  - ANAL STENOSIS [None]
  - ANAL FISSURE [None]
  - OESOPHAGITIS [None]
  - ACROCHORDON [None]
  - COLITIS ULCERATIVE [None]
